FAERS Safety Report 4886277-7 (Version None)
Quarter: 2006Q1

REPORT INFORMATION
  Report Type: 
  Country: None (occurrence: None)
  Receive Date: 20060118
  Receipt Date: 20060106
  Transmission Date: 20060701
  Serious: Yes (Other)
  Sender: FDA-Public Use
  Company Number: 2006004655

PATIENT
  Sex: Male

DRUGS (8)
  1. LIPITOR [Suspect]
     Indication: BLOOD CHOLESTEROL INCREASED
     Dosage: 80 MG (80 MG, 1 IN 1 D); ORAL
     Route: 048
  2. CELEBREX [Suspect]
     Indication: ILL-DEFINED DISORDER
     Dosage: 400 MG (200 MG, 2 IN 1 D); ORAL
     Route: 048
  3. MORPHINE [Suspect]
     Indication: PAIN
     Dates: start: 20050101
  4. WARFARIN [Concomitant]
  5. DIGOXIN [Concomitant]
  6. NIASPAN [Concomitant]
  7. TAMSULOSIN HCL [Concomitant]
  8. ISOSORBIDE MONONITRATE [Concomitant]

REACTIONS (5)
  - ARTERIAL OCCLUSIVE DISEASE [None]
  - FATIGUE [None]
  - ILL-DEFINED DISORDER [None]
  - IMPAIRED WORK ABILITY [None]
  - WEIGHT DECREASED [None]
